FAERS Safety Report 24308124 (Version 1)
Quarter: 2024Q3

REPORT INFORMATION
  Report Type: Other
  Country: US (occurrence: US)
  Receive Date: 20240911
  Receipt Date: 20240911
  Transmission Date: 20241017
  Serious: No
  Sender: SIGMA TAU
  Company Number: US-LEADIANT BIOSCIENCES, INC.-2024LBI000055

PATIENT
  Sex: Female

DRUGS (5)
  1. MATULANE [Suspect]
     Active Substance: PROCARBAZINE HYDROCHLORIDE
     Indication: Brain neoplasm malignant
     Dosage: 50 MILLIGRAMS, 2 CAPSULES EVERY DAY ON DAYS 8 TO 21 EVERY 42 DAYS
     Route: 048
     Dates: start: 20231010
  2. LEVETIRACETAM [Concomitant]
     Active Substance: LEVETIRACETAM
  3. OXCARBAZEPINE [Concomitant]
     Active Substance: OXCARBAZEPINE
     Dosage: 450 MILLIGRAMS, BID
  4. LACOSAMIDE [Concomitant]
     Active Substance: LACOSAMIDE
     Dosage: 100 MILLIGRAMS,BID
  5. CLOBAZAM [Concomitant]
     Active Substance: CLOBAZAM
     Dosage: 5 MILLIGRAMS, QHS TIMES 2 WEEKS

REACTIONS (2)
  - Epilepsy [Unknown]
  - Anxiety [Unknown]
